FAERS Safety Report 17032088 (Version 2)
Quarter: 2019Q4

REPORT INFORMATION
  Report Type: Spontaneous
  Country: FR (occurrence: FR)
  Receive Date: 20191114
  Receipt Date: 20191209
  Transmission Date: 20200122
  Serious: Yes (Life-Threatening)
  Sender: FDA-Public Use
  Company Number: FR-TAKEDA-2019TUS064563

PATIENT
  Age: 41 Year
  Sex: Male
  Weight: 61 kg

DRUGS (14)
  1. RAMIPRIL. [Concomitant]
     Active Substance: RAMIPRIL
  2. CELLCEPT [Concomitant]
     Active Substance: MYCOPHENOLATE MOFETIL\MYCOPHENOLATE MOFETIL HYDROCHLORIDE
  3. ADVAGRAF [Concomitant]
     Active Substance: TACROLIMUS
  4. EUPANTOL [Concomitant]
     Active Substance: PANTOPRAZOLE SODIUM
     Dosage: 40 MILLIGRAM
  5. UVEDOSE [Concomitant]
     Active Substance: CHOLECALCIFEROL
  6. ADVAGRAF [Concomitant]
     Active Substance: TACROLIMUS
  7. NINLARO [Suspect]
     Active Substance: IXAZOMIB CITRATE
     Indication: MONOCLONAL GAMMOPATHY
     Dosage: UNK
     Route: 048
     Dates: start: 20190820, end: 20191020
  8. RAMIPRIL. [Concomitant]
     Active Substance: RAMIPRIL
  9. ENDOXAN                            /00021101/ [Concomitant]
     Active Substance: CYCLOPHOSPHAMIDE
     Dosage: UNK
     Dates: start: 20190505
  10. VALACICLOVIR [Concomitant]
     Active Substance: VALACYCLOVIR HYDROCHLORIDE
  11. DEXAMETHASONE ACETATE [Concomitant]
     Active Substance: DEXAMETHASONE ACETATE
  12. UVEDOSE [Concomitant]
     Active Substance: CHOLECALCIFEROL
  13. VALACICLOVIR [Concomitant]
     Active Substance: VALACYCLOVIR HYDROCHLORIDE
  14. SOLUPRED                           /00016201/ [Concomitant]
     Active Substance: PREDNISOLONE
     Dosage: 5 MILLIGRAM

REACTIONS (1)
  - Acute coronary syndrome [Recovered/Resolved]

NARRATIVE: CASE EVENT DATE: 20191019
